FAERS Safety Report 6468865-X (Version None)
Quarter: 2009Q4

REPORT INFORMATION
  Report Type: 
  Country: None (occurrence: None)
  Receive Date: 20091203
  Receipt Date: 20090601
  Transmission Date: 20100525
  Serious: Yes (Death)
  Sender: FDA-Public Use
  Company Number: JP-ELI_LILLY_AND_COMPANY-JP_051108096

PATIENT
  Sex: Male

DRUGS (6)
  1. GEMZAR [Suspect]
     Indication: BILE DUCT CANCER
     Dosage: 1000 MG, OTHER
     Route: 042
     Dates: start: 20050816, end: 20050830
  2. GEMZAR [Suspect]
     Dosage: 800 MG, OTHER
     Route: 042
     Dates: start: 20050913, end: 20050927
  3. GASTER D                                /KOR/ [Concomitant]
     Indication: PROPHYLAXIS
     Dosage: 2 D/F, DAILY (1/D)
     Route: 048
     Dates: start: 20050920, end: 20051011
  4. RINDERON [Concomitant]
     Indication: MALAISE
     Dosage: 4 D/F, DAILY (1/D)
     Route: 048
     Dates: start: 20050720, end: 20051011
  5. GASTROM [Concomitant]
     Indication: PROPHYLAXIS
     Dosage: 3 G, DAILY (1/D)
     Route: 048
     Dates: start: 20050720, end: 20051011
  6. SEROTONE [Concomitant]
     Indication: PROPHYLAXIS
     Dosage: 1 D/F, DAILY (1/D)
     Route: 042
     Dates: start: 20050816, end: 20050927

REACTIONS (3)
  - INTERSTITIAL LUNG DISEASE [None]
  - PLATELET COUNT DECREASED [None]
  - PYREXIA [None]
